FAERS Safety Report 16938090 (Version 1)
Quarter: 2019Q4

REPORT INFORMATION
  Report Type: Spontaneous
  Country: US (occurrence: US)
  Receive Date: 20191018
  Receipt Date: 20191018
  Transmission Date: 20200122
  Serious: Yes (Other)
  Sender: FDA-Public Use
  Company Number: US-SEATTLE GENETICS-2019SGN03531

PATIENT
  Age: 34 Year
  Sex: Male

DRUGS (5)
  1. ADCETRIS [Suspect]
     Active Substance: BRENTUXIMAB VEDOTIN
  2. ABACAVIR. [Concomitant]
     Active Substance: ABACAVIR
  3. DOLUTEGRAVIR [Concomitant]
     Active Substance: DOLUTEGRAVIR
     Indication: HODGKIN^S DISEASE LYMPHOCYTE DEPLETION TYPE STAGE UNSPECIFIED
     Dosage: 1.2 MG/KG, UNK
  4. LAMIVUDINE. [Concomitant]
     Active Substance: LAMIVUDINE
  5. DOLUTEGRAVIR [Concomitant]
     Active Substance: DOLUTEGRAVIR
     Dosage: 1.8 MG/KG, UNK

REACTIONS (3)
  - Multiple organ dysfunction syndrome [Recovered/Resolved]
  - Disease progression [Unknown]
  - Off label use [Unknown]
